FAERS Safety Report 4362521-X (Version None)
Quarter: 2004Q2

REPORT INFORMATION
  Report Type: 
  Country: None (occurrence: None)
  Receive Date: 20040521
  Receipt Date: 20040514
  Transmission Date: 20050107
  Serious: Yes (Hospitalization)
  Sender: FDA-Public Use
  Company Number: US-AMGEN-US075968

PATIENT
  Sex: Female
  Weight: 59 kg

DRUGS (8)
  1. SENSIPAR [Suspect]
     Indication: HYPERPARATHYROIDISM SECONDARY
     Route: 048
     Dates: start: 20040508, end: 20040509
  2. VASOTEC [Suspect]
     Route: 048
     Dates: start: 20020911, end: 20040501
  3. COZAAR [Concomitant]
     Route: 048
  4. COUMADIN [Concomitant]
     Route: 048
  5. TOPROL-XL [Concomitant]
     Route: 048
  6. RENAGEL [Concomitant]
  7. NEURONTIN [Concomitant]
     Route: 048
     Dates: start: 20011006
  8. SONATA [Concomitant]
     Route: 048
     Dates: start: 20040205

REACTIONS (1)
  - ANGIONEUROTIC OEDEMA [None]
